FAERS Safety Report 6616607-7 (Version None)
Quarter: 2010Q1

REPORT INFORMATION
  Report Type: 
  Country: None (occurrence: None)
  Receive Date: 20100305
  Receipt Date: 20100222
  Transmission Date: 20100710
  Serious: Yes (Other)
  Sender: FDA-Public Use
  Company Number: US-PFIZER INC-2010026825

PATIENT
  Sex: Female
  Weight: 61.678 kg

DRUGS (3)
  1. ZOLOFT [Suspect]
     Indication: DEPRESSION
     Dosage: UNK
     Route: 048
  2. EVISTA [Concomitant]
     Dosage: UNK
  3. METAMIZOLE [Concomitant]

REACTIONS (3)
  - ANXIETY [None]
  - BLOOD CHOLESTEROL INCREASED [None]
  - BREAST CANCER [None]
